FAERS Safety Report 6543572-3 (Version None)
Quarter: 2010Q1

REPORT INFORMATION
  Report Type: 
  Country: None (occurrence: None)
  Receive Date: 20100120
  Receipt Date: 20100115
  Transmission Date: 20100710
  Serious: Yes (Disabling, Other)
  Sender: FDA-Public Use
  Company Number: FR-BRISTOL-MYERS SQUIBB COMPANY-14936587

PATIENT
  Age: 72 Year
  Sex: Male

DRUGS (2)
  1. AMIKACIN SULFATE [Suspect]
     Indication: LUNG INFECTION
     Dosage: REDUCED TO 700MG DAILY ON 22OCT08.
     Route: 042
  2. CEFOXITIN SODIUM [Suspect]
     Indication: LUNG INFECTION
     Route: 042

REACTIONS (6)
  - DEAFNESS [None]
  - DEPRESSION [None]
  - EMPHYSEMA [None]
  - GENERAL PHYSICAL HEALTH DETERIORATION [None]
  - LUNG DISORDER [None]
  - MYCOBACTERIUM ABSCESSUS INFECTION [None]
